FAERS Safety Report 7306276-5 (Version None)
Quarter: 2011Q1

REPORT INFORMATION
  Report Type: 
  Country: None (occurrence: None)
  Receive Date: 20110210
  Receipt Date: 20110127
  Transmission Date: 20110831
  Serious: Yes (Hospitalization)
  Sender: FDA-Public Use
  Company Number: 024743

PATIENT
  Age: 45 Year
  Sex: Male

DRUGS (5)
  1. PHENOBARBITAL [Concomitant]
  2. LACOSAMIDE [Suspect]
     Indication: EPILEPSY
     Dates: start: 20100401, end: 20110104
  3. PHENYTOIN [Concomitant]
  4. KEPPRA [Suspect]
     Indication: EPILEPSY
     Dosage: (3000 MG)
     Dates: start: 20090401
  5. VALPROIC ACID [Concomitant]

REACTIONS (4)
  - ISCHAEMIA [None]
  - HYPERHIDROSIS [None]
  - TRANSAMINASES INCREASED [None]
  - CHEST DISCOMFORT [None]
